FAERS Safety Report 7747818-5 (Version None)
Quarter: 2011Q3

REPORT INFORMATION
  Report Type: 
  Country: None (occurrence: None)
  Receive Date: 20110913
  Receipt Date: 20110902
  Transmission Date: 20111222
  Serious: Yes (Hospitalization)
  Sender: FDA-Public Use
  Company Number: US-BAYER-201030596NA

PATIENT
  Age: 44 Year
  Sex: Female
  Weight: 53.515 kg

DRUGS (10)
  1. YAZ [Suspect]
     Indication: ORAL CONTRACEPTION
     Dosage: UNK UNK, UNK
     Route: 048
     Dates: start: 20040901, end: 20060701
  2. ACETAMINOPHEN [Concomitant]
     Dosage: UNK
     Dates: start: 20000101
  3. PHENTERMINE [Concomitant]
     Dosage: 37.5 MG, UNK
     Dates: start: 20060501
  4. YASMIN [Suspect]
     Indication: ORAL CONTRACEPTION
     Dosage: UNK UNK, UNK
     Route: 048
     Dates: start: 20040901, end: 20060701
  5. ASCORBIC ACID [Concomitant]
     Dosage: UNK
     Dates: start: 20030101
  6. AMOXICILLIN [Concomitant]
  7. HERBALS NOS W/MINERALS NOS/VITAMINS NOS [Concomitant]
     Dosage: UNK
     Dates: start: 20030101
  8. HEART MEDICATION [Concomitant]
     Indication: HEART RATE IRREGULAR
     Dosage: UNK
     Dates: start: 20060101, end: 20090101
  9. IBUPROFEN [Concomitant]
     Dosage: UNK
     Dates: start: 20000101
  10. EXCEDRIN (MIGRAINE) [Concomitant]
     Dosage: UNK
     Dates: start: 20000101

REACTIONS (3)
  - MENTAL DISORDER [None]
  - PULMONARY EMBOLISM [None]
  - DEEP VEIN THROMBOSIS [None]
